FAERS Safety Report 5143961-8 (Version None)
Quarter: 2006Q4

REPORT INFORMATION
  Report Type: 
  Country: None (occurrence: None)
  Receive Date: 20061106
  Receipt Date: 20061024
  Transmission Date: 20070319
  Serious: Yes (Hospitalization, Other)
  Sender: FDA-Public Use
  Company Number: ES-AVENTIS-200615427EU

PATIENT
  Age: 35 Year
  Sex: Male

DRUGS (2)
  1. SEGURIL                            /00032601/ [Suspect]
     Indication: CIRRHOSIS ALCOHOLIC
     Route: 048
     Dates: start: 20051231, end: 20060129
  2. ALDACTONE [Suspect]
     Indication: CIRRHOSIS ALCOHOLIC
     Route: 048
     Dates: start: 20051231, end: 20060129

REACTIONS (3)
  - CONDITION AGGRAVATED [None]
  - CONSTIPATION [None]
  - HEPATIC ENCEPHALOPATHY [None]
